FAERS Safety Report 6174654-6 (Version None)
Quarter: 2009Q2

REPORT INFORMATION
  Report Type: 
  Country: None (occurrence: None)
  Receive Date: 20090430
  Receipt Date: 20090424
  Transmission Date: 20091009
  Serious: No
  Sender: FDA-Public Use
  Company Number: AU-JNJFOC-20090405958

PATIENT
  Age: 42 Year
  Sex: Female

DRUGS (1)
  1. DURAGESIC-100 [Suspect]
     Indication: DRUG USE FOR UNKNOWN INDICATION
     Route: 062

REACTIONS (3)
  - INAPPROPRIATE SCHEDULE OF DRUG ADMINISTRATION [None]
  - OVERDOSE [None]
  - WITHDRAWAL SYNDROME [None]
